FAERS Safety Report 6480382-X (Version None)
Quarter: 2009Q4

REPORT INFORMATION
  Report Type: 
  Country: None (occurrence: None)
  Receive Date: 20091202
  Receipt Date: 20091120
  Transmission Date: 20100525
  Serious: Yes (Hospitalization)
  Sender: FDA-Public Use
  Company Number: 234375K09USA

PATIENT
  Age: 45 Year
  Sex: Male

DRUGS (5)
  1. REBIF [Suspect]
     Indication: MULTIPLE SCLEROSIS
     Dosage: 44 MCG, 3 IN 1 WEEKS, SUBCUTANEOUS
     Route: 058
     Dates: start: 20061003, end: 20090401
  2. REBIF [Suspect]
     Indication: MULTIPLE SCLEROSIS
     Dosage: 44 MCG, 3 IN 1 WEEKS, SUBCUTANEOUS
     Route: 058
     Dates: start: 20090421
  3. BACLOFEN [Concomitant]
  4. RANITIDINE (RANITIDINE  /00550801/) [Concomitant]
  5. ZOLPIDEM (ZOLPIDEM /00914901/) [Concomitant]

REACTIONS (4)
  - DYSARTHRIA [None]
  - FATIGUE [None]
  - URINARY TRACT INFECTION [None]
  - VOMITING [None]
